FAERS Safety Report 6100176-4 (Version None)
Quarter: 2009Q1

REPORT INFORMATION
  Report Type: 
  Country: None (occurrence: None)
  Receive Date: 20090303
  Receipt Date: 20090223
  Transmission Date: 20090719
  Serious: Yes (Hospitalization)
  Sender: FDA-Public Use
  Company Number: CN-JNJFOC-20090205820

PATIENT
  Age: 26 Year
  Sex: Male

DRUGS (2)
  1. CHILDREN'S MOTRIN [Suspect]
     Route: 048
  2. CHILDREN'S MOTRIN [Suspect]
     Indication: PAIN IN EXTREMITY
     Dosage: 300-400 MG/DOSE
     Route: 048

REACTIONS (1)
  - OEDEMA PERIPHERAL [None]
